FAERS Safety Report 6288384-3 (Version None)
Quarter: 2009Q3

REPORT INFORMATION
  Report Type: 
  Country: None (occurrence: None)
  Receive Date: 20090729
  Receipt Date: 20090721
  Transmission Date: 20100115
  Serious: Yes (Other)
  Sender: FDA-Public Use
  Company Number: B0584950A

PATIENT
  Sex: Female

DRUGS (1)
  1. NIQUITIN CQ 4MG LOZENGE [Suspect]
     Route: 002

REACTIONS (6)
  - DIZZINESS [None]
  - HEADACHE [None]
  - HYPERHIDROSIS [None]
  - INTRACRANIAL PRESSURE INCREASED [None]
  - NAUSEA [None]
  - OVERDOSE [None]
